FAERS Safety Report 7179885-4 (Version None)
Quarter: 2010Q4

REPORT INFORMATION
  Report Type: 
  Country: None (occurrence: None)
  Receive Date: 20101221
  Receipt Date: 20101202
  Transmission Date: 20110411
  Serious: No
  Sender: FDA-Public Use
  Company Number: US-B.I. PHARMACEUTICALS,INC./RIDGEFIELD-2010-BP-13765BP

PATIENT
  Sex: Male

DRUGS (8)
  1. PRADAXA [Suspect]
     Indication: ATRIAL FIBRILLATION
     Dosage: 300 MG
     Route: 048
     Dates: start: 20101122, end: 20101125
  2. NORVASC [Concomitant]
     Indication: HYPERTENSION
  3. SOTALOL [Concomitant]
  4. BENICAR [Concomitant]
  5. FUROSEMIDE [Concomitant]
  6. GABAPENTIN [Concomitant]
  7. LOVASTATIN [Concomitant]
  8. ASPIRIN [Concomitant]

REACTIONS (1)
  - VERTIGO [None]
